FAERS Safety Report 13774581 (Version 1)
Quarter: 2017Q3

REPORT INFORMATION
  Report Type: Spontaneous
  Country: DE (occurrence: DE)
  Receive Date: 20170721
  Receipt Date: 20170721
  Transmission Date: 20171127
  Serious: Yes (Other)
  Sender: FDA-Public Use
  Company Number: PHHY2017DE104482

PATIENT
  Age: 64 Year
  Sex: Male

DRUGS (1)
  1. SULFAMETHOXAZOLE+TRIMETHOPRIM [Suspect]
     Active Substance: SULFAMETHOXAZOLE\TRIMETHOPRIM
     Indication: WHIPPLE^S DISEASE
     Dosage: 1920 MG, QD
     Route: 065

REACTIONS (1)
  - Renal failure [Unknown]
